FAERS Safety Report 6318888-6 (Version None)
Quarter: 2009Q3

REPORT INFORMATION
  Report Type: 
  Country: None (occurrence: None)
  Receive Date: 20090821
  Receipt Date: 20090813
  Transmission Date: 20100115
  Serious: Yes (Other)
  Sender: FDA-Public Use
  Company Number: GB-MERCK-0908GBR00036

PATIENT
  Age: 60 Year
  Sex: Female
  Weight: 53 kg

DRUGS (7)
  1. FOSAMAX [Suspect]
     Route: 048
     Dates: start: 20060201
  2. DICLOFENAC [Suspect]
     Route: 048
     Dates: start: 20041201, end: 20081030
  3. ETANERCEPT [Suspect]
     Indication: RHEUMATOID ARTHRITIS
     Route: 058
     Dates: start: 20070110, end: 20090110
  4. LANSOPRAZOLE [Suspect]
     Route: 048
     Dates: start: 20070101, end: 20081001
  5. LEFLUNOMIDE [Suspect]
     Indication: RHEUMATOID ARTHRITIS
     Route: 048
     Dates: start: 20041201, end: 20090107
  6. ATORVASTATIN [Concomitant]
     Indication: BLOOD CHOLESTEROL INCREASED
     Route: 048
     Dates: start: 20080101, end: 20090101
  7. CALCIUM CARBONATE AND CHOLECALCIFEROL [Concomitant]
     Indication: OSTEOPOROSIS PROPHYLAXIS
     Route: 048
     Dates: end: 20090101

REACTIONS (3)
  - BLOOD CREATINE INCREASED [None]
  - RENAL FAILURE [None]
  - TUBULOINTERSTITIAL NEPHRITIS [None]
